FAERS Safety Report 4352718-7 (Version None)
Quarter: 2004Q2

REPORT INFORMATION
  Report Type: 
  Country: None (occurrence: None)
  Receive Date: 20040504
  Receipt Date: 20040429
  Transmission Date: 20050107
  Serious: Yes (Hospitalization)
  Sender: FDA-Public Use
  Company Number: US-GLAXOSMITHKLINE-A0509085A

PATIENT
  Sex: Male

DRUGS (1)
  1. LOTRONEX [Suspect]
     Indication: IRRITABLE BOWEL SYNDROME
     Dosage: 2MG PER DAY
     Route: 048
     Dates: start: 20040115, end: 20040410

REACTIONS (2)
  - DRUG INEFFECTIVE [None]
  - INTESTINAL OBSTRUCTION [None]
